FAERS Safety Report 5088859-9 (Version None)
Quarter: 2006Q3

REPORT INFORMATION
  Report Type: 
  Country: None (occurrence: None)
  Receive Date: 20060824
  Receipt Date: 20060824
  Transmission Date: 20061208
  Serious: Yes (Other)
  Sender: FDA-Public Use
  Company Number: None

PATIENT
  Sex: Male

DRUGS (1)
  1. APLISOL [Suspect]
     Indication: TUBERCULIN TEST
     Dosage: 0.1 ML   ONCE   ID
     Route: 023
     Dates: start: 20060710

REACTIONS (1)
  - FALSE POSITIVE TUBERCULOSIS TEST [None]
